FAERS Safety Report 10125905 (Version 2)
Quarter: 2014Q2

REPORT INFORMATION
  Report Type: Report from Study
  Country: US (occurrence: US)
  Receive Date: 20140427
  Receipt Date: 20140427
  Transmission Date: 20141212
  Serious: Yes (Other)
  Sender: FDA-Public Use
  Company Number: PHEH2014US005427

PATIENT
  Sex: Female

DRUGS (21)
  1. TOBI PODHALER [Suspect]
     Indication: CYSTIC FIBROSIS
     Dosage: 112 MG, BID
     Route: 055
  2. ALBUTEROL SULFATE AND IPRATROPIUM BROMIDE [Concomitant]
     Dosage: UNK UKN, QID
     Route: 055
  3. ALBUTEROL SULFATE AND IPRATROPIUM BROMIDE [Concomitant]
     Dosage: UNK UKN, PRN (Q3 HOURS)
     Route: 055
  4. SALINE [Concomitant]
     Dosage: 4 ML, BID
     Route: 055
  5. ADVAIR [Concomitant]
     Dosage: 1 DF, BID
  6. CETRIZINE [Concomitant]
     Dosage: 10 MG, DAILY
     Route: 048
  7. CREON [Concomitant]
     Dosage: 24000 U,( LIPASE THREE CAPSULES WITH MEALS AND ONE CAPSULES WITH MEALS)
  8. MULTIVITAMIN                       /00097801/ [Concomitant]
     Dosage: UNK UKN,DAILY
  9. CHOLECALCIFEROL [Concomitant]
     Dosage: 10000 U, BID
     Route: 048
  10. CALCIUM [Concomitant]
     Dosage: 1500 MG, DAILY
     Route: 048
  11. AZITHROMYCIN [Concomitant]
     Dosage: 500 MG, UNK
     Route: 048
  12. BONIVA [Concomitant]
     Dosage: 150 MG, QMO
     Route: 048
  13. MIRALAX [Concomitant]
     Dosage: 17 MG, PRN
     Route: 048
  14. WELLBUTRIN [Concomitant]
     Dosage: 150 MG, DAILY
     Route: 048
  15. VORICONAZOLE [Concomitant]
     Dosage: 200 MG, BID
     Route: 048
  16. ANTIBIOTICS [Concomitant]
     Indication: INFECTIVE PULMONARY EXACERBATION OF CYSTIC FIBROSIS
     Dosage: UNK
     Route: 042
  17. AZTREONAM [Concomitant]
     Dosage: 75 MG, TID (DURING ALTERNATE MONTHS)
     Route: 055
  18. PREDNISONE [Concomitant]
     Dosage: 15 MG,DAILY
     Route: 048
  19. NUTRITION SUPPLEMENTS [Concomitant]
     Dosage: UNK UKN, UNK
  20. OXYGEN [Concomitant]
     Dosage: UNK 3-4 LITRE/MIN BY NASAL CANNULA DAY AND NIGHT
  21. ENSURE [Concomitant]

REACTIONS (23)
  - Cystic fibrosis [Unknown]
  - Pseudomonas test positive [Unknown]
  - Lung disorder [Unknown]
  - Immunosuppression [Unknown]
  - Pancreatic insufficiency [Unknown]
  - Osteoporosis [Unknown]
  - Activities of daily living impaired [Unknown]
  - Respiratory tract congestion [Unknown]
  - Chest pain [Unknown]
  - Fatigue [Unknown]
  - Weight decreased [Unknown]
  - Tachypnoea [Unknown]
  - Respiratory rate increased [Unknown]
  - Heart rate increased [Unknown]
  - Blood pressure increased [Unknown]
  - Clubbing [Unknown]
  - Obstructive airways disorder [Unknown]
  - Staphylococcus test positive [Unknown]
  - Hypovitaminosis [Unknown]
  - Rales [Unknown]
  - Dyspnoea exertional [Not Recovered/Not Resolved]
  - Cough [Unknown]
  - Productive cough [Unknown]
